FAERS Safety Report 24771411 (Version 1)
Quarter: 2024Q4

REPORT INFORMATION
  Report Type: Spontaneous
  Country: CA (occurrence: CA)
  Receive Date: 20241224
  Receipt Date: 20241224
  Transmission Date: 20250114
  Serious: Yes (Death, Other)
  Sender: BRISTOL-MYERS SQUIBB COMPANY
  Company Number: CA-BRISTOL-MYERS SQUIBB COMPANY-2024-195264

PATIENT
  Age: 44 Year
  Sex: Female
  Weight: 97 kg

DRUGS (188)
  1. ORENCIA [Suspect]
     Active Substance: ABATACEPT
     Indication: Rheumatoid arthritis
     Route: 058
  2. ACETAMINOPHEN [Concomitant]
     Active Substance: ACETAMINOPHEN
     Indication: Rheumatoid arthritis
     Route: 058
  3. ACETAMINOPHEN [Concomitant]
     Active Substance: ACETAMINOPHEN
     Route: 048
  4. ACTEMRA [Concomitant]
     Active Substance: TOCILIZUMAB
     Indication: Rheumatoid arthritis
     Route: 042
  5. ACTEMRA [Concomitant]
     Active Substance: TOCILIZUMAB
     Route: 042
  6. ACTEMRA [Concomitant]
     Active Substance: TOCILIZUMAB
     Route: 058
  7. ACTEMRA [Concomitant]
     Active Substance: TOCILIZUMAB
     Route: 042
  8. ACTEMRA [Concomitant]
     Active Substance: TOCILIZUMAB
  9. ACTEMRA [Concomitant]
     Active Substance: TOCILIZUMAB
     Route: 042
  10. ADALIMUMAB [Concomitant]
     Active Substance: ADALIMUMAB
     Indication: Product used for unknown indication
     Route: 058
  11. ADALIMUMAB [Concomitant]
     Active Substance: ADALIMUMAB
     Route: 058
  12. ADVIL [Concomitant]
     Active Substance: IBUPROFEN
     Indication: Product used for unknown indication
  13. ALENDRONATE SODIUM [Concomitant]
     Active Substance: ALENDRONATE SODIUM
     Indication: Rheumatoid arthritis
     Route: 016
  14. ALENDRONATE SODIUM [Concomitant]
     Active Substance: ALENDRONATE SODIUM
     Route: 048
  15. ALENDRONATE SODIUM [Concomitant]
     Active Substance: ALENDRONATE SODIUM
     Route: 058
  16. ALENDRONATE SODIUM\CHOLECALCIFEROL [Concomitant]
     Active Substance: ALENDRONATE SODIUM\CHOLECALCIFEROL
     Indication: Rheumatoid arthritis
     Route: 058
  17. ALENDRONIC ACID [Concomitant]
     Active Substance: ALENDRONIC ACID
     Indication: Rheumatoid arthritis
     Route: 048
  18. PANTOPRAZOLE SODIUM ANHYDROUS [Concomitant]
     Active Substance: PANTOPRAZOLE SODIUM ANHYDROUS
     Indication: Product used for unknown indication
  19. PREDNISONE [Concomitant]
     Active Substance: PREDNISONE
     Indication: Rheumatoid arthritis
  20. PREDNISONE [Concomitant]
     Active Substance: PREDNISONE
     Indication: Condition aggravated
     Route: 048
  21. ARAVA [Concomitant]
     Active Substance: LEFLUNOMIDE
     Indication: Rheumatoid arthritis
  22. ARAVA [Concomitant]
     Active Substance: LEFLUNOMIDE
     Route: 048
  23. ARAVA [Concomitant]
     Active Substance: LEFLUNOMIDE
  24. ARAVA [Concomitant]
     Active Substance: LEFLUNOMIDE
     Route: 005
  25. ARAVA [Concomitant]
     Active Substance: LEFLUNOMIDE
  26. ASACOL [Concomitant]
     Active Substance: MESALAMINE
     Indication: Crohn^s disease
  27. ATIVAN [Concomitant]
     Active Substance: LORAZEPAM
     Indication: Product used for unknown indication
  28. AZATHIOPRINE [Concomitant]
     Active Substance: AZATHIOPRINE
     Indication: Rheumatoid arthritis
     Route: 058
  29. CAFFEINE [Concomitant]
     Active Substance: CAFFEINE
     Indication: Rheumatoid arthritis
  30. CAFFEINE CITRATE [Concomitant]
     Active Substance: CAFFEINE CITRATE
     Indication: Product used for unknown indication
     Route: 048
  31. CALCIUM [Concomitant]
     Active Substance: CALCIUM
     Indication: Product used for unknown indication
  32. DIETARY SUPPLEMENT\MINERALS\VITAMINS [Concomitant]
     Active Substance: DIETARY SUPPLEMENT\MINERALS\VITAMINS
     Indication: Rheumatoid arthritis
     Dosage: TAB 400UNIT
  33. CELEBREX [Concomitant]
     Active Substance: CELECOXIB
     Indication: Rheumatoid arthritis
  34. CELEBREX [Concomitant]
     Active Substance: CELECOXIB
     Route: 048
  35. CELEBREX [Concomitant]
     Active Substance: CELECOXIB
     Route: 048
  36. CELEBREX [Concomitant]
     Active Substance: CELECOXIB
     Route: 048
  37. CELECOXIB [Concomitant]
     Active Substance: CELECOXIB
     Indication: Rheumatoid arthritis
     Route: 048
  38. CELECOXIB [Concomitant]
     Active Substance: CELECOXIB
     Route: 048
  39. CELECOXIB [Concomitant]
     Active Substance: CELECOXIB
     Route: 048
  40. CHLORAPREP [Concomitant]
     Active Substance: CHLORHEXIDINE GLUCONATE\ISOPROPYL ALCOHOL
     Indication: Rheumatoid arthritis
     Route: 058
  41. CHLORAPREP [Concomitant]
     Active Substance: CHLORHEXIDINE GLUCONATE\ISOPROPYL ALCOHOL
  42. CHLORHEXIDINE GLUCONATE [Concomitant]
     Active Substance: CHLORHEXIDINE GLUCONATE
     Indication: Rheumatoid arthritis
     Route: 058
  43. CHLORHEXIDINE GLUCONATE [Concomitant]
     Active Substance: CHLORHEXIDINE GLUCONATE
  44. CIMZIA [Concomitant]
     Active Substance: CERTOLIZUMAB PEGOL
     Indication: Rheumatoid arthritis
     Route: 005
  45. CIMZIA [Concomitant]
     Active Substance: CERTOLIZUMAB PEGOL
     Indication: Psoriasis
     Route: 058
  46. CODEINE [Concomitant]
     Active Substance: CODEINE
     Indication: Rheumatoid arthritis
  47. CORTISONE [Concomitant]
     Active Substance: CORTISONE
     Indication: Rheumatoid arthritis
     Route: 058
  48. CORTISONE [Concomitant]
     Active Substance: CORTISONE
     Route: 048
  49. CORTISONE [Concomitant]
     Active Substance: CORTISONE
     Route: 003
  50. COSENTYX [Concomitant]
     Active Substance: SECUKINUMAB
     Indication: Rheumatoid arthritis
  51. COSENTYX [Concomitant]
     Active Substance: SECUKINUMAB
     Indication: Psoriatic arthropathy
     Route: 005
  52. COSENTYX [Concomitant]
     Active Substance: SECUKINUMAB
     Route: 048
  53. DESOXIMETASONE [Concomitant]
     Active Substance: DESOXIMETASONE
     Indication: Rheumatoid arthritis
     Route: 016
  54. DESOXIMETASONE [Concomitant]
     Active Substance: DESOXIMETASONE
     Route: 003
  55. DESOXIMETASONE [Concomitant]
     Active Substance: DESOXIMETASONE
     Route: 067
  56. DESOXIMETASONE [Concomitant]
     Active Substance: DESOXIMETASONE
     Route: 048
  57. DESOXIMETASONE [Concomitant]
     Active Substance: DESOXIMETASONE
  58. DESOXIMETASONE [Concomitant]
     Active Substance: DESOXIMETASONE
     Route: 016
  59. DESOXIMETASONE [Concomitant]
     Active Substance: DESOXIMETASONE
     Route: 048
  60. DICLOFENAC POTASSIUM [Concomitant]
     Active Substance: DICLOFENAC POTASSIUM
     Indication: Rheumatoid arthritis
     Route: 048
  61. DICLOFENAC SODIUM [Concomitant]
     Active Substance: DICLOFENAC SODIUM
     Indication: Rheumatoid arthritis
  62. DICLOFENAC SODIUM [Concomitant]
     Active Substance: DICLOFENAC SODIUM
     Route: 047
  63. DICLOFENAC SODIUM [Concomitant]
     Active Substance: DICLOFENAC SODIUM
     Route: 058
  64. DIPHENHYDRAMINE [Concomitant]
     Active Substance: DIPHENHYDRAMINE
     Indication: Product used for unknown indication
  65. DOXYCYCLINE HYCLATE [Concomitant]
     Active Substance: DOXYCYCLINE HYCLATE
     Indication: Rheumatoid arthritis
     Route: 058
  66. DOXYCYCLINE HYCLATE [Concomitant]
     Active Substance: DOXYCYCLINE HYCLATE
     Route: 005
  67. ENBREL [Concomitant]
     Active Substance: ETANERCEPT
     Indication: Rheumatoid arthritis
     Route: 058
  68. ENBREL [Concomitant]
     Active Substance: ETANERCEPT
     Indication: Psoriatic arthropathy
     Route: 058
  69. ERELZI [Concomitant]
     Active Substance: ETANERCEPT-SZZS
     Indication: Rheumatoid arthritis
     Route: 058
  70. ERGOCALCIFEROL [Concomitant]
     Active Substance: ERGOCALCIFEROL
     Indication: Rheumatoid arthritis
  71. ERYTHROMYCIN [Concomitant]
     Active Substance: ERYTHROMYCIN
     Indication: Product used for unknown indication
  72. FLUMETHASONE PIVALATE [Concomitant]
     Active Substance: FLUMETHASONE PIVALATE
     Indication: Rheumatoid arthritis
  73. FLUOROMETHOLONE [Concomitant]
     Active Substance: FLUOROMETHOLONE
     Indication: Product used for unknown indication
     Route: 047
  74. FOLIC ACID [Concomitant]
     Active Substance: FOLIC ACID
     Indication: Rheumatoid arthritis
  75. FOLIC ACID [Concomitant]
     Active Substance: FOLIC ACID
  76. FOLIC ACID [Concomitant]
     Active Substance: FOLIC ACID
  77. FOLIC ACID [Concomitant]
     Active Substance: FOLIC ACID
  78. FOLIC ACID [Concomitant]
     Active Substance: FOLIC ACID
     Route: 048
  79. FOLIC ACID [Concomitant]
     Active Substance: FOLIC ACID
  80. FOLIC ACID [Concomitant]
     Active Substance: FOLIC ACID
  81. FOLIC ACID [Concomitant]
     Active Substance: FOLIC ACID
     Route: 058
  82. FOSAMAX [Concomitant]
     Active Substance: ALENDRONATE SODIUM
     Indication: Rheumatoid arthritis
     Route: 005
  83. FOSAMAX [Concomitant]
     Active Substance: ALENDRONATE SODIUM
     Route: 058
  84. FOSAMAX [Concomitant]
     Active Substance: ALENDRONATE SODIUM
  85. FOSAMAX [Concomitant]
     Active Substance: ALENDRONATE SODIUM
     Route: 016
  86. FOSAMAX [Concomitant]
     Active Substance: ALENDRONATE SODIUM
     Route: 048
  87. FOSAPREPITANT [Concomitant]
     Active Substance: FOSAPREPITANT
     Indication: Rheumatoid arthritis
  88. GLUCOSAMINE [Concomitant]
     Active Substance: GLUCOSAMINE
     Indication: Rheumatoid arthritis
     Route: 048
  89. HUMIRA [Concomitant]
     Active Substance: ADALIMUMAB
     Indication: Rheumatoid arthritis
     Route: 058
  90. HUMIRA [Concomitant]
     Active Substance: ADALIMUMAB
     Route: 058
  91. HUMIRA [Concomitant]
     Active Substance: ADALIMUMAB
     Route: 058
  92. HUMIRA [Concomitant]
     Active Substance: ADALIMUMAB
     Route: 058
  93. HYALURONIDASE [Concomitant]
     Active Substance: HYALURONIDASE
     Indication: Product used for unknown indication
  94. HYDROCORTISONE [Concomitant]
     Active Substance: HYDROCORTISONE
     Indication: Rheumatoid arthritis
     Route: 003
  95. HYDROCORTISONE [Concomitant]
     Active Substance: HYDROCORTISONE
     Route: 058
  96. HYDROCORTISONE [Concomitant]
     Active Substance: HYDROCORTISONE
     Route: 048
  97. HYDROXYCHLOROQUINE [Concomitant]
     Active Substance: HYDROXYCHLOROQUINE
     Indication: Rheumatoid arthritis
     Route: 048
  98. HYDROXYCHLOROQUINE [Concomitant]
     Active Substance: HYDROXYCHLOROQUINE
     Route: 048
  99. HYDROXYCHLOROQUINE [Concomitant]
     Active Substance: HYDROXYCHLOROQUINE
     Route: 005
  100. HYDROXYCHLOROQUINE SULFATE [Concomitant]
     Active Substance: HYDROXYCHLOROQUINE SULFATE
     Indication: Rheumatoid arthritis
     Route: 048
  101. HYDROXYCHLOROQUINE SULFATE [Concomitant]
     Active Substance: HYDROXYCHLOROQUINE SULFATE
  102. HYDROXYCHLOROQUINE SULFATE [Concomitant]
     Active Substance: HYDROXYCHLOROQUINE SULFATE
  103. HYDROXYCHLOROQUINE SULFATE [Concomitant]
     Active Substance: HYDROXYCHLOROQUINE SULFATE
  104. HYDROXYCHLOROQUINE SULFATE [Concomitant]
     Active Substance: HYDROXYCHLOROQUINE SULFATE
     Route: 016
  105. INFLIXIMAB [Concomitant]
     Active Substance: INFLIXIMAB
     Indication: Rheumatoid arthritis
  106. ISOPROPYL ALCOHOL [Concomitant]
     Active Substance: ISOPROPYL ALCOHOL
     Indication: Product used for unknown indication
     Route: 061
  107. LANSOPRAZOLE [Concomitant]
     Active Substance: LANSOPRAZOLE
     Indication: Rheumatoid arthritis
     Route: 048
  108. LEFLUNOMIDE [Concomitant]
     Active Substance: LEFLUNOMIDE
     Indication: Rheumatoid arthritis
  109. LEFLUNOMIDE [Concomitant]
     Active Substance: LEFLUNOMIDE
     Route: 048
  110. LISINOPRIL [Concomitant]
     Active Substance: LISINOPRIL
     Indication: Product used for unknown indication
     Route: 048
  111. CLIOQUINOL\FLUMETHASONE [Concomitant]
     Active Substance: CLIOQUINOL\FLUMETHASONE
     Indication: Product used for unknown indication
  112. LORAZEPAM [Concomitant]
     Active Substance: LORAZEPAM
     Indication: Rheumatoid arthritis
  113. LYRICA [Concomitant]
     Active Substance: PREGABALIN
     Indication: Product used for unknown indication
     Route: 048
  114. MAGNESIUM [Concomitant]
     Active Substance: MAGNESIUM
     Indication: Product used for unknown indication
     Route: 048
  115. FOSAPREPITANT DIMEGLUMINE [Concomitant]
     Active Substance: FOSAPREPITANT\FOSAPREPITANT DIMEGLUMINE
     Indication: Product used for unknown indication
     Route: 048
  116. MELOXICAM [Concomitant]
     Active Substance: MELOXICAM
     Indication: Product used for unknown indication
  117. MESALAMINE [Concomitant]
     Active Substance: MESALAMINE
     Indication: Crohn^s disease
  118. METHOTREXATE [Concomitant]
     Active Substance: METHOTREXATE
     Indication: Rheumatoid arthritis
  119. METHOTREXATE [Concomitant]
     Active Substance: METHOTREXATE
     Indication: Psoriatic arthropathy
     Route: 048
  120. METHOTREXATE [Concomitant]
     Active Substance: METHOTREXATE
     Route: 016
  121. METHOTREXATE [Concomitant]
     Active Substance: METHOTREXATE
  122. METHOTREXATE [Concomitant]
     Active Substance: METHOTREXATE
  123. METHOTREXATE [Concomitant]
     Active Substance: METHOTREXATE
     Route: 048
  124. METHOTREXATE [Concomitant]
     Active Substance: METHOTREXATE
     Route: 048
  125. METHOTREXATE [Concomitant]
     Active Substance: METHOTREXATE
     Route: 016
  126. MORPHINE [Concomitant]
     Active Substance: MORPHINE
     Indication: Rheumatoid arthritis
     Route: 048
  127. MYCOPHENOLATE MOFETIL [Concomitant]
     Active Substance: MYCOPHENOLATE MOFETIL
     Indication: Rheumatoid arthritis
  128. NAPROXEN SODIUM [Concomitant]
     Active Substance: NAPROXEN SODIUM
     Indication: Rheumatoid arthritis
  129. NAPROXEN SODIUM [Concomitant]
     Active Substance: NAPROXEN SODIUM
  130. OTEZLA [Concomitant]
     Active Substance: APREMILAST
     Indication: Rheumatoid arthritis
  131. OTEZLA [Concomitant]
     Active Substance: APREMILAST
     Route: 048
  132. OTEZLA [Concomitant]
     Active Substance: APREMILAST
  133. PANTOPRAZOLE SODIUM [Concomitant]
     Active Substance: PANTOPRAZOLE SODIUM
     Indication: Rheumatoid arthritis
     Route: 016
  134. PANTOPRAZOLE SODIUM [Concomitant]
     Active Substance: PANTOPRAZOLE SODIUM
     Route: 048
  135. PANTOPRAZOLE SODIUM [Concomitant]
     Active Substance: PANTOPRAZOLE SODIUM
  136. PARA-AMINOSALICYLIC ACID [Concomitant]
     Active Substance: AMINOSALICYLIC ACID
     Indication: Product used for unknown indication
  137. PERCOCET [Concomitant]
     Active Substance: ACETAMINOPHEN\OXYCODONE HYDROCHLORIDE
     Indication: Rheumatoid arthritis
     Route: 048
  138. PERCOCET [Concomitant]
     Active Substance: ACETAMINOPHEN\OXYCODONE HYDROCHLORIDE
     Route: 058
  139. PHTHALYLSULFATHIAZOLE [Concomitant]
     Active Substance: PHTHALYLSULFATHIAZOLE
     Indication: Rheumatoid arthritis
     Route: 016
  140. PHTHALYLSULFATHIAZOLE [Concomitant]
     Active Substance: PHTHALYLSULFATHIAZOLE
     Route: 048
  141. PHTHALYLSULFATHIAZOLE [Concomitant]
     Active Substance: PHTHALYLSULFATHIAZOLE
  142. PHTHALYLSULFATHIAZOLE [Concomitant]
     Active Substance: PHTHALYLSULFATHIAZOLE
     Route: 005
  143. PIROXICAM [Concomitant]
     Active Substance: PIROXICAM
     Indication: Product used for unknown indication
  144. HYDROXYCHLOROQUINE DIPHOSPHATE [Concomitant]
     Active Substance: HYDROXYCHLOROQUINE DIPHOSPHATE
     Indication: Rheumatoid arthritis
  145. HYDROXYCHLOROQUINE DIPHOSPHATE [Concomitant]
     Active Substance: HYDROXYCHLOROQUINE DIPHOSPHATE
     Route: 005
  146. PREDNISONE [Concomitant]
     Active Substance: PREDNISONE
     Indication: Rheumatoid arthritis
     Route: 048
  147. PREDNISONE [Concomitant]
     Active Substance: PREDNISONE
     Indication: Condition aggravated
     Route: 048
  148. PREDNISONE [Concomitant]
     Active Substance: PREDNISONE
     Indication: Arthralgia
     Route: 048
  149. PREDNISONE [Concomitant]
     Active Substance: PREDNISONE
  150. PREDNISONE [Concomitant]
     Active Substance: PREDNISONE
     Route: 048
  151. PREGABALIN [Concomitant]
     Active Substance: PREGABALIN
     Indication: Rheumatoid arthritis
  152. PREVACID [Concomitant]
     Active Substance: LANSOPRAZOLE
     Indication: Product used for unknown indication
     Route: 048
  153. PSEUDOEPHEDRINE [Concomitant]
     Active Substance: PSEUDOEPHEDRINE
     Indication: Rheumatoid arthritis
  154. PSEUDOEPHEDRINE [Concomitant]
     Active Substance: PSEUDOEPHEDRINE
  155. PSEUDOEPHEDRINE [Concomitant]
     Active Substance: PSEUDOEPHEDRINE
  156. PSEUDOEPHEDRINE [Concomitant]
     Active Substance: PSEUDOEPHEDRINE
  157. QUETIAPINE FUMARATE [Concomitant]
     Active Substance: QUETIAPINE FUMARATE
     Indication: Product used for unknown indication
  158. RAMIPRIL [Concomitant]
     Active Substance: RAMIPRIL
     Indication: Product used for unknown indication
     Route: 016
  159. CETIRIZINE HYDROCHLORIDE [Concomitant]
     Active Substance: CETIRIZINE HYDROCHLORIDE
     Indication: Rheumatoid arthritis
     Route: 016
  160. CETIRIZINE HYDROCHLORIDE [Concomitant]
     Active Substance: CETIRIZINE HYDROCHLORIDE
     Route: 048
  161. CETIRIZINE HYDROCHLORIDE [Concomitant]
     Active Substance: CETIRIZINE HYDROCHLORIDE
     Route: 048
  162. CETIRIZINE HYDROCHLORIDE [Concomitant]
     Active Substance: CETIRIZINE HYDROCHLORIDE
     Route: 048
  163. CETIRIZINE HYDROCHLORIDE [Concomitant]
     Active Substance: CETIRIZINE HYDROCHLORIDE
     Route: 048
  164. RITUXIMAB [Concomitant]
     Active Substance: RITUXIMAB
     Indication: Rheumatoid arthritis
     Route: 042
  165. RITUXIMAB [Concomitant]
     Active Substance: RITUXIMAB
     Route: 016
  166. ALBUTEROL [Concomitant]
     Active Substance: ALBUTEROL
     Indication: Product used for unknown indication
  167. SIMPONI [Concomitant]
     Active Substance: GOLIMUMAB
     Indication: Rheumatoid arthritis
     Route: 048
  168. SIMPONI [Concomitant]
     Active Substance: GOLIMUMAB
     Route: 058
  169. STELARA [Concomitant]
     Active Substance: USTEKINUMAB
     Indication: Product used for unknown indication
     Route: 058
  170. SULFAMETHOXAZOLE\TRIMETHOPRIM [Concomitant]
     Active Substance: SULFAMETHOXAZOLE\TRIMETHOPRIM
     Indication: Product used for unknown indication
  171. SULFASALAZINE [Concomitant]
     Active Substance: SULFASALAZINE
     Indication: Rheumatoid arthritis
     Route: 048
  172. SULFASALAZINE [Concomitant]
     Active Substance: SULFASALAZINE
  173. SULFASALAZINE [Concomitant]
     Active Substance: SULFASALAZINE
     Route: 048
  174. SULFASALAZINE [Concomitant]
     Active Substance: SULFASALAZINE
     Route: 048
  175. SULFASALAZINE [Concomitant]
     Active Substance: SULFASALAZINE
  176. SULFASALAZINE [Concomitant]
     Active Substance: SULFASALAZINE
  177. SULFASALAZINE [Concomitant]
     Active Substance: SULFASALAZINE
     Route: 048
  178. SULFASALAZINE [Concomitant]
     Active Substance: SULFASALAZINE
     Route: 048
  179. SULFASALAZINE [Concomitant]
     Active Substance: SULFASALAZINE
  180. SULFASALAZINE [Concomitant]
     Active Substance: SULFASALAZINE
     Route: 048
  181. SULFASALAZINE [Concomitant]
     Active Substance: SULFASALAZINE
     Route: 048
  182. SULFASALAZINE [Concomitant]
     Active Substance: SULFASALAZINE
  183. SULFASALAZINE [Concomitant]
     Active Substance: SULFASALAZINE
     Route: 058
  184. TUMS [Concomitant]
     Active Substance: CALCIUM CARBONATE
     Indication: Product used for unknown indication
  185. XELJANZ [Concomitant]
     Active Substance: TOFACITINIB CITRATE
     Indication: Rheumatoid arthritis
     Route: 048
  186. XELJANZ [Concomitant]
     Active Substance: TOFACITINIB CITRATE
     Route: 048
  187. XELJANZ [Concomitant]
     Active Substance: TOFACITINIB CITRATE
     Route: 048
  188. ZESTRIL [Concomitant]
     Active Substance: LISINOPRIL
     Indication: Product used for unknown indication
     Route: 048

REACTIONS (1)
  - Death [Fatal]
